FAERS Safety Report 8823982 (Version 1)
Quarter: 2012Q4

REPORT INFORMATION
  Report Type: Report from Study
  Country: US (occurrence: US)
  Receive Date: 20121003
  Receipt Date: 20121003
  Transmission Date: 20130627
  Serious: Yes (Hospitalization)
  Sender: FDA-Public Use
  Company Number: US-009507513-1210USA000844

PATIENT
  Age: 58 Year
  Sex: Female

DRUGS (10)
  1. JANUVIA [Suspect]
     Dosage: 1000 mg, qd
     Route: 048
  2. TRACLEER [Suspect]
     Dosage: 125 mg, bid
     Route: 048
  3. SYNTHROID [Concomitant]
  4. INSULIN [Concomitant]
  5. OXYGEN [Concomitant]
  6. CYANOCOBALAMIN [Concomitant]
  7. VOLTAREN [Concomitant]
  8. ACIPHEX [Concomitant]
  9. EFFEXOR [Concomitant]
  10. COUMADIN [Concomitant]

REACTIONS (4)
  - Dyspnoea [Unknown]
  - Asthenia [Unknown]
  - Liver function test abnormal [Unknown]
  - Diarrhoea [Unknown]
